FAERS Safety Report 6936755-1 (Version None)
Quarter: 2010Q3

REPORT INFORMATION
  Report Type: 
  Country: None (occurrence: None)
  Receive Date: 20100823
  Receipt Date: 20100813
  Transmission Date: 20110219
  Serious: Yes (Death, Hospitalization)
  Sender: FDA-Public Use
  Company Number: GXKR2010KR09088

PATIENT
  Age: 11 Year
  Sex: Female
  Weight: 36 kg

DRUGS (3)
  1. BUPROPION (NGX) [Suspect]
     Indication: ATTENTION DEFICIT/HYPERACTIVITY DISORDER
     Dosage: 6 G (167 MG/KG)
     Route: 048
  2. BUPROPION (NGX) [Suspect]
     Indication: TIC
  3. LORAZEPAM [Suspect]
     Indication: CONVULSION
     Dosage: 4 MG, UNK

REACTIONS (16)
  - AGITATION [None]
  - BRADYCARDIA [None]
  - CARDIAC ARREST [None]
  - CIRCULATORY COLLAPSE [None]
  - COMA [None]
  - CONFUSIONAL STATE [None]
  - CONVULSION [None]
  - HALLUCINATION, VISUAL [None]
  - INTENTIONAL OVERDOSE [None]
  - LETHARGY [None]
  - MECHANICAL VENTILATION [None]
  - MUSCLE FATIGUE [None]
  - PULSE ABSENT [None]
  - RESPIRATORY FAILURE [None]
  - RESUSCITATION [None]
  - SINUS TACHYCARDIA [None]
